FAERS Safety Report 23604563 (Version 1)
Quarter: 2024Q1

REPORT INFORMATION
  Report Type: Spontaneous
  Country: CN (occurrence: CN)
  Receive Date: 20240307
  Receipt Date: 20240307
  Transmission Date: 20240410
  Serious: Yes (Hospitalization)
  Sender: FDA-Public Use
  Company Number: CN-STRIDES ARCOLAB LIMITED-2024SP002046

PATIENT
  Age: 66 Year
  Sex: Male

DRUGS (9)
  1. METHOTREXATE [Interacting]
     Active Substance: METHOTREXATE
     Indication: Rheumatoid arthritis
     Dosage: 10 MILLIGRAM, PER WEEK
     Route: 065
  2. IBUPROFEN [Interacting]
     Active Substance: IBUPROFEN
     Indication: Arthralgia
     Dosage: UNK
     Route: 065
  3. OMEPRAZOLE [Interacting]
     Active Substance: OMEPRAZOLE
     Indication: Stress ulcer
     Dosage: UNK
     Route: 065
  4. MEROPENEM [Interacting]
     Active Substance: MEROPENEM
     Indication: Infection
     Dosage: UNK
     Route: 065
  5. CEPHALOTHIN [Suspect]
     Active Substance: CEPHALOTHIN
     Indication: Infection
     Dosage: UNK
     Route: 065
  6. RABEPRAZOLE [Interacting]
     Active Substance: RABEPRAZOLE
     Indication: Stress ulcer
     Dosage: UNK
     Route: 065
  7. PANTOPRAZOLE [Interacting]
     Active Substance: PANTOPRAZOLE
     Indication: Stress ulcer
     Dosage: UNK
     Route: 065
  8. DEXKETOPROFEN [Interacting]
     Active Substance: DEXKETOPROFEN
     Indication: Arthralgia
     Dosage: UNK
     Route: 065
  9. LEUCOGEN [Concomitant]
     Active Substance: LEUCOGEN
     Indication: White blood cell count decreased
     Dosage: UNK
     Route: 065

REACTIONS (8)
  - Drug interaction [Unknown]
  - Drug clearance decreased [Recovered/Resolved]
  - Drug level increased [Recovered/Resolved]
  - Myelosuppression [Recovered/Resolved]
  - Pancytopenia [Recovered/Resolved]
  - Anaemia [Recovered/Resolved]
  - Ascites [Recovered/Resolved]
  - Infection [Recovered/Resolved]
